FAERS Safety Report 9069812 (Version 1)
Quarter: 2013Q1

REPORT INFORMATION
  Report Type: Spontaneous
  Country: NZ (occurrence: NZ)
  Receive Date: 20130215
  Receipt Date: 20130215
  Transmission Date: 20140127
  Serious: Yes (Death)
  Sender: FDA-Public Use
  Company Number: NZ-ALLERGAN-1302107US

PATIENT
  Age: 2 Month
  Sex: Female

DRUGS (1)
  1. PRED FORTE [Suspect]
     Indication: POST PROCEDURAL COMPLICATION
     Route: 047

REACTIONS (3)
  - Escherichia sepsis [Fatal]
  - Necrotising colitis [Fatal]
  - Convulsion [Fatal]
